FAERS Safety Report 10158059 (Version 2)
Quarter: 2014Q3

REPORT INFORMATION
  Report Type: Spontaneous
  Country: IT (occurrence: IT)
  Receive Date: 20140507
  Receipt Date: 20140709
  Transmission Date: 20150326
  Serious: Yes (Other)
  Sender: FDA-Public Use
  Company Number: IT-PFIZER INC-2014123503

PATIENT
  Age: 76 Year
  Sex: Female

DRUGS (12)
  1. ENOXAPARINE [Concomitant]
     Active Substance: ENOXAPARIN
  2. HUMALOG [Concomitant]
     Active Substance: INSULIN LISPRO
  3. TRIAZOLAM. [Suspect]
     Active Substance: TRIAZOLAM
     Dosage: 0.25 MG, DAILY
     Route: 048
     Dates: start: 20140130, end: 20140425
  4. SUCRALFATE. [Concomitant]
     Active Substance: SUCRALFATE
  5. SIMVASTATIN. [Concomitant]
     Active Substance: SIMVASTATIN
  6. TACHIDOL [Suspect]
     Active Substance: ACETAMINOPHEN\CODEINE PHOSPHATE
     Dosage: 2 DF, DAILY
     Route: 048
     Dates: start: 20140130, end: 20140425
  7. THIAMAZOLE [Concomitant]
     Active Substance: METHIMAZOLE
  8. PARACETAMOL [Concomitant]
     Active Substance: ACETAMINOPHEN
     Dosage: 500 MG, UNK
     Route: 048
  9. FUROSEMIDE. [Concomitant]
     Active Substance: FUROSEMIDE
  10. CITALOPRAM [Concomitant]
     Active Substance: CITALOPRAM HYDROBROMIDE
  11. LANTUS [Concomitant]
     Active Substance: INSULIN GLARGINE
  12. LYRICA [Suspect]
     Active Substance: PREGABALIN
     Dosage: 225 MG, DAILY
     Route: 048
     Dates: start: 20140130, end: 20140425

REACTIONS (3)
  - Confusional state [Recovering/Resolving]
  - Disorientation [Recovering/Resolving]
  - Speech disorder [Recovering/Resolving]

NARRATIVE: CASE EVENT DATE: 20140425
